FAERS Safety Report 5576000-5 (Version None)
Quarter: 2007Q4

REPORT INFORMATION
  Report Type: 
  Country: None (occurrence: None)
  Receive Date: 20071228
  Receipt Date: 20071219
  Transmission Date: 20080405
  Serious: Yes (Hospitalization)
  Sender: FDA-Public Use
  Company Number: IT-BAYER-200718465GPV

PATIENT
  Age: 42 Year
  Sex: Male

DRUGS (5)
  1. FLUDARABINE PHOSPHATE [Suspect]
     Indication: CHRONIC LYMPHOCYTIC LEUKAEMIA
     Route: 042
  2. FLUDARABINE PHOSPHATE [Suspect]
     Dates: start: 20070308, end: 20070310
  3. CYCLOPHOSPHAMIDE [Suspect]
     Indication: CHRONIC LYMPHOCYTIC LEUKAEMIA
     Route: 042
  4. CYCLOPHOSPHAMIDE [Suspect]
     Dates: start: 20070308, end: 20070310
  5. BACTRIM [Concomitant]
     Indication: ANTIFUNGAL PROPHYLAXIS
     Route: 048
     Dates: start: 20061009

REACTIONS (4)
  - ASTHENIA [None]
  - HEADACHE [None]
  - NEUROCYSTICERCOSIS [None]
  - SOMNOLENCE [None]
